FAERS Safety Report 20950946 (Version 2)
Quarter: 2022Q3

REPORT INFORMATION
  Report Type: Spontaneous
  Country: US (occurrence: US)
  Receive Date: 20220613
  Receipt Date: 20220808
  Transmission Date: 20221026
  Serious: No
  Sender: FDA-Public Use
  Company Number: US-PFIZER INC-202200824743

PATIENT
  Age: 37 Year
  Sex: Female

DRUGS (6)
  1. XELJANZ XR [Suspect]
     Active Substance: TOFACITINIB CITRATE
     Indication: Rheumatoid arthritis
     Dosage: 11 MG, DAILY
     Route: 048
     Dates: start: 20220501
  2. DULOXETINE [Concomitant]
     Active Substance: DULOXETINE
     Dosage: UNK
  3. GABAPENTIN [Concomitant]
     Active Substance: GABAPENTIN
     Dosage: UNK
  4. LEFLUNOMIDE [Concomitant]
     Active Substance: LEFLUNOMIDE
     Dosage: UNK
  5. LORATADINE [Concomitant]
     Active Substance: LORATADINE
     Dosage: UNK
  6. PREDNISONE [Concomitant]
     Active Substance: PREDNISONE
     Dosage: UNK

REACTIONS (3)
  - Gastritis [Recovered/Resolved]
  - Fibromyalgia [Not Recovered/Not Resolved]
  - Drug ineffective [Not Recovered/Not Resolved]

NARRATIVE: CASE EVENT DATE: 20220101
